FAERS Safety Report 20376078 (Version 3)
Quarter: 2022Q1

REPORT INFORMATION
  Report Type: Spontaneous
  Country: US (occurrence: US)
  Receive Date: 20220125
  Receipt Date: 20220321
  Transmission Date: 20220423
  Serious: Yes (Other)
  Sender: FDA-Public Use
  Company Number: US-PFIZER INC-202200114029

PATIENT
  Age: 62 Year
  Sex: Female

DRUGS (1)
  1. XELJANZ [Suspect]
     Active Substance: TOFACITINIB CITRATE
     Indication: Rheumatoid arthritis
     Dosage: 5 MG

REACTIONS (6)
  - Neoplasm malignant [Recovered/Resolved]
  - Cerebral disorder [Unknown]
  - Illness [Unknown]
  - COVID-19 [Unknown]
  - Pain [Unknown]
  - Bedridden [Unknown]

NARRATIVE: CASE EVENT DATE: 20220101
